FAERS Safety Report 4551921-0 (Version None)
Quarter: 2004Q4

REPORT INFORMATION
  Report Type: 
  Country: None (occurrence: None)
  Receive Date: 20041217
  Receipt Date: 20040824
  Transmission Date: 20050328
  Serious: No
  Sender: FDA-Public Use
  Company Number: 2004-BP-07167BP

PATIENT
  Age: 74 Year
  Sex: Male

DRUGS (9)
  1. SPIRIVA [Suspect]
     Indication: COUGH
     Dosage: 36 MCG (18 MCG, 2 CAPSULES PER DAY), IH
     Route: 055
  2. ASCRIPTIN (ASCRIPTIN) [Concomitant]
  3. CENTRUM SILVER WITH LYCPENE (CENTRUM SILVER) [Concomitant]
  4. LISINOPRIL W/HCTZ (PRINZIDE) [Concomitant]
  5. PLAVIX [Concomitant]
  6. LANOXIN [Concomitant]
  7. METOPROLOL TARTRATE [Concomitant]
  8. ADVICOR 500 (ADVICOR - SLOW RELEASE) [Concomitant]
  9. NASACORT [Concomitant]

REACTIONS (1)
  - DRUG INEFFECTIVE [None]
